FAERS Safety Report 17920921 (Version 1)
Quarter: 2020Q2

REPORT INFORMATION
  Report Type: Spontaneous
  Country: US (occurrence: US)
  Receive Date: 20200622
  Receipt Date: 20200622
  Transmission Date: 20200714
  Serious: No
  Sender: FDA-Public Use
  Company Number: US-BIOGEN-2020BI00888767

PATIENT
  Sex: Female

DRUGS (2)
  1. RITUXIMAB. [Suspect]
     Active Substance: RITUXIMAB
     Indication: PRODUCT USED FOR UNKNOWN INDICATION
     Dosage: STOP DATE: JUNE/JULY 2019.
     Route: 065
     Dates: start: 2013, end: 2019
  2. TECFIDERA [Suspect]
     Active Substance: DIMETHYL FUMARATE
     Indication: MULTIPLE SCLEROSIS
     Route: 065
     Dates: start: 20130508, end: 20130607

REACTIONS (3)
  - Upper respiratory tract infection [Recovered/Resolved]
  - Influenza like illness [Recovered/Resolved]
  - Sinusitis [Recovered/Resolved]

NARRATIVE: CASE EVENT DATE: 2013
